FAERS Safety Report 13982079 (Version 1)
Quarter: 2017Q3

REPORT INFORMATION
  Report Type: Spontaneous
  Country: US (occurrence: US)
  Receive Date: 20170918
  Receipt Date: 20170918
  Transmission Date: 20171128
  Serious: Yes (Other)
  Sender: FDA-Public Use
  Company Number: US-AUROBINDO-AUR-APL-2017-40153

PATIENT
  Age: 66 Year
  Sex: Male

DRUGS (2)
  1. LITHIUM. [Suspect]
     Active Substance: LITHIUM
     Indication: BIPOLAR DISORDER
     Route: 065
  2. LISINOPRIL. [Suspect]
     Active Substance: LISINOPRIL
     Indication: HYPERTENSION
     Dosage: UNK

REACTIONS (15)
  - Somnolence [Unknown]
  - Acute kidney injury [Unknown]
  - Dysarthria [Unknown]
  - Toxicity to various agents [Recovered/Resolved]
  - Ataxia [Unknown]
  - Tremor [Unknown]
  - Memory impairment [Not Recovered/Not Resolved]
  - Neurotoxicity [Unknown]
  - Confusional state [Unknown]
  - Moaning [Unknown]
  - Myoclonus [Unknown]
  - Muscle contractions involuntary [Unknown]
  - Lethargy [Unknown]
  - Agitation [Unknown]
  - Hyperreflexia [Unknown]
